FAERS Safety Report 8818217 (Version 1)
Quarter: 2012Q4

REPORT INFORMATION
  Report Type: 
  Country: US (occurrence: US)
  Receive Date: 20121001
  Receipt Date: 20121001
  Transmission Date: 20130627
  Serious: No
  Sender: FDA-Public Use
  Company Number: US-PFIZER INC-2012241752

PATIENT
  Age: 62 Year
  Sex: Female
  Weight: 77.1 kg

DRUGS (3)
  1. LYRICA [Suspect]
     Indication: NEURALGIA
     Dosage: 75 mg, UNK
     Route: 048
  2. LYRICA [Suspect]
     Dosage: 150 mg, 2x/day
     Route: 048
  3. LYRICA [Suspect]
     Dosage: UNK
     Route: 048

REACTIONS (3)
  - Pain [Unknown]
  - Agitation [Recovered/Resolved]
  - Irritability [Unknown]
